FAERS Safety Report 8969685 (Version 1)
Quarter: 2012Q4

REPORT INFORMATION
  Report Type: 
  Country: US (occurrence: US)
  Receive Date: 20121218
  Receipt Date: 20121218
  Transmission Date: 20130627
  Serious: No
  Sender: FDA-Public Use
  Company Number: US-BRISTOL-MYERS SQUIBB COMPANY-16563322

PATIENT
  Age: 17 Year
  Sex: Female

DRUGS (2)
  1. ABILIFY [Suspect]
     Indication: BIPOLAR I DISORDER
     Dosage: 2.5mg in Aug2011,increased to 5mg:Oct2011,15mg:Nov2011
     Dates: start: 201111
  2. ABILIFY [Suspect]
     Indication: AFFECTIVE DISORDER
     Dosage: 2.5mg in Aug2011,increased to 5mg:Oct2011,15mg:Nov2011
     Dates: start: 201111

REACTIONS (1)
  - Dystonia [Recovering/Resolving]
